FAERS Safety Report 17151110 (Version 1)
Quarter: 2019Q4

REPORT INFORMATION
  Report Type: Spontaneous
  Country: FI (occurrence: FI)
  Receive Date: 20191213
  Receipt Date: 20191213
  Transmission Date: 20200122
  Serious: Yes (Hospitalization)
  Sender: FDA-Public Use
  Company Number: FI-JNJFOC-20191213909

PATIENT
  Age: 91 Year
  Sex: Female

DRUGS (7)
  1. FURESIS [Concomitant]
     Active Substance: FUROSEMIDE
     Indication: CARDIAC FAILURE
     Dosage: 20 MG, QD
     Route: 048
     Dates: start: 20180809
  2. ORLOC [Concomitant]
     Active Substance: BISOPROLOL FUMARATE
     Indication: HEART RATE
     Dosage: 10 MG, QD
     Route: 048
     Dates: start: 20060802
  3. PANTOPRAZOLE SODIUM SESQUIHYDRATE [Concomitant]
     Active Substance: PANTOPRAZOLE SODIUM
     Dosage: 20 MG, QD
     Route: 048
     Dates: start: 20180819
  4. RIVAROXABAN [Suspect]
     Active Substance: RIVAROXABAN
     Indication: ATRIAL FIBRILLATION
     Dosage: 20 MG, QD
     Route: 048
     Dates: start: 20180501, end: 20190914
  5. MACROGOL 4000 [Concomitant]
     Active Substance: POLYETHYLENE GLYCOL 4000
     Indication: CONSTIPATION
     Dosage: 12 G, QD
     Route: 048
     Dates: start: 20180809
  6. MIRTAZAPINE. [Concomitant]
     Active Substance: MIRTAZAPINE
     Indication: SLEEP DISORDER
     Dosage: 7.5 MG, QD
     Route: 048
     Dates: start: 20180809
  7. PANADOL FORTE [Concomitant]
     Indication: PAIN
     Dosage: 2 G, QD
     Dates: start: 20121205

REACTIONS (4)
  - Femoral neck fracture [Recovered/Resolved with Sequelae]
  - Craniotomy [Recovered/Resolved with Sequelae]
  - Fall [Recovered/Resolved with Sequelae]
  - Subdural haemorrhage [Recovered/Resolved with Sequelae]

NARRATIVE: CASE EVENT DATE: 20190914
